FAERS Safety Report 8954658 (Version 1)
Quarter: 2012Q4

REPORT INFORMATION
  Report Type: 
  Country: DE (occurrence: DE)
  Receive Date: 20121209
  Receipt Date: 20121209
  Transmission Date: 20130627
  Serious: Yes (Death, Hospitalization)
  Sender: FDA-Public Use
  Company Number: DE-BAXTER-2012BAX025789

PATIENT

DRUGS (14)
  1. DIANEAL PD4 GLUCOSE 1,36 % W/V [Suspect]
     Indication: AUTOMATED PERITONEAL DIALYSIS
     Route: 033
  2. EXTRANEAL [Suspect]
     Indication: PERITONEAL DIALYSIS
  3. PHYSIONEAL 35 GLUCOSE 2,27 % W/V 22,7 MG/ML CLEAR-FLEX PERITONEALDIALY [Suspect]
     Indication: PERITONEAL DIALYSIS
     Route: 033
  4. DALTEPARIN [Concomitant]
     Indication: DRUG USE FOR UNKNOWN INDICATION
     Route: 058
  5. PHYTOMENADION [Concomitant]
     Indication: DRUG USE FOR UNKNOWN INDICATION
  6. CINACALCET [Concomitant]
     Indication: DRUG USE FOR UNKNOWN INDICATION
  7. SEVELAMER CARBONATE [Concomitant]
     Indication: DRUG USE FOR UNKNOWN INDICATION
  8. CANDESARTAN [Concomitant]
     Indication: DRUG USE FOR UNKNOWN INDICATION
  9. SOTALOL [Concomitant]
     Indication: DRUG USE FOR UNKNOWN INDICATION
  10. DOXAZOSIN [Concomitant]
     Indication: DRUG USE FOR UNKNOWN INDICATION
  11. LERCANIDIPINE [Concomitant]
     Indication: DRUG USE FOR UNKNOWN INDICATION
  12. LEVOTHYROXIN [Concomitant]
     Indication: DRUG USE FOR UNKNOWN INDICATION
  13. PANTOPRAZOL [Concomitant]
     Indication: DRUG USE FOR UNKNOWN INDICATION
  14. NOVAMINSULFON [Concomitant]
     Indication: DRUG USE FOR UNKNOWN INDICATION

REACTIONS (4)
  - Sepsis [Fatal]
  - Haemorrhage [Fatal]
  - Calciphylaxis [Fatal]
  - Multimorbidity [Fatal]
